FAERS Safety Report 5099947-5 (Version None)
Quarter: 2006Q3

REPORT INFORMATION
  Report Type: 
  Country: None (occurrence: None)
  Receive Date: 20060906
  Receipt Date: 20060906
  Transmission Date: 20061208
  Serious: Yes (Hospitalization, Other)
  Sender: FDA-Public Use
  Company Number: None

PATIENT
  Age: 48 Year
  Sex: Female
  Weight: 58 kg

DRUGS (9)
  1. ORENCIA [Suspect]
     Indication: RHEUMATOID ARTHRITIS
     Dosage: 500MG  IV  X1
     Route: 042
     Dates: start: 20060815
  2. DILTIAZEM CD [Concomitant]
  3. FLORINEF [Concomitant]
  4. FORTEO [Concomitant]
  5. MAG-OX [Concomitant]
  6. IMURAN [Concomitant]
  7. PREMARIN [Concomitant]
  8. PROTONIX [Concomitant]
  9. VESICARE [Concomitant]

REACTIONS (4)
  - BLOOD PRESSURE INCREASED [None]
  - CHEST PAIN [None]
  - DRUG HYPERSENSITIVITY [None]
  - PALPITATIONS [None]
